FAERS Safety Report 5102131-X (Version None)
Quarter: 2006Q3

REPORT INFORMATION
  Report Type: 
  Country: None (occurrence: None)
  Receive Date: 20060912
  Receipt Date: 20060901
  Transmission Date: 20061208
  Serious: Yes (Hospitalization, Disabling, Other)
  Sender: FDA-Public Use
  Company Number: US-ABBOTT-06P-163-0342919-00

PATIENT
  Sex: Male
  Weight: 74.91 kg

DRUGS (5)
  1. KALETRA [Suspect]
     Indication: HIV INFECTION
     Dosage: 133.3/33.3 - 4 CAPS BID
     Route: 048
     Dates: start: 20040101, end: 20060830
  2. KALETRA [Suspect]
     Indication: HIV INFECTION
     Dosage: 200MG/50MG - 3 TABS BID
     Route: 048
     Dates: start: 20060830
  3. PROSAC [Concomitant]
     Indication: DEPRESSION
     Route: 048
     Dates: start: 20060801
  4. FLOMAX [Concomitant]
     Indication: EJACULATION FAILURE
     Route: 048
     Dates: start: 20060801
  5. ALPRAZOLAM [Concomitant]
     Indication: ANXIETY
     Dosage: 0.25MG - 0.5MG
     Route: 048
     Dates: start: 20000101

REACTIONS (7)
  - ARTHROPOD BITE [None]
  - DEEP VEIN THROMBOSIS [None]
  - NAUSEA [None]
  - PARALYSIS [None]
  - STAPHYLOCOCCAL INFECTION [None]
  - THROMBOSIS [None]
  - VOMITING [None]
